FAERS Safety Report 5016004-4 (Version None)
Quarter: 2006Q2

REPORT INFORMATION
  Report Type: 
  Country: None (occurrence: None)
  Receive Date: 20060414
  Receipt Date: 20060309
  Transmission Date: 20061013
  Serious: No
  Sender: FDA-Public Use
  Company Number: 2006SP001158

PATIENT
  Age: 72 Year
  Sex: Male
  Weight: 109.7705 kg

DRUGS (6)
  1. LUNESTA [Suspect]
     Indication: INSOMNIA
     Dosage: 2 MG;ORAL
     Route: 048
     Dates: start: 20060201, end: 20060301
  2. ZOCOR [Concomitant]
  3. METFORMIN HCL [Concomitant]
  4. LISINOPRIL [Concomitant]
  5. NADOLOL [Concomitant]
  6. CENTRUM SILVER [Concomitant]

REACTIONS (1)
  - DYSGEUSIA [None]
